FAERS Safety Report 21054854 (Version 2)
Quarter: 2022Q3

REPORT INFORMATION
  Report Type: Spontaneous
  Country: ES (occurrence: ES)
  Receive Date: 20220707
  Receipt Date: 20220729
  Transmission Date: 20221027
  Serious: Yes (Death, Hospitalization)
  Sender: FDA-Public Use
  Company Number: ES-TEVA-2022-ES-2052398

PATIENT
  Age: 65 Year
  Sex: Female

DRUGS (6)
  1. ACYCLOVIR [Suspect]
     Active Substance: ACYCLOVIR
     Indication: Evidence based treatment
     Route: 065
  2. ACYCLOVIR [Suspect]
     Active Substance: ACYCLOVIR
     Indication: Herpes simplex encephalitis
  3. PEMBROLIZUMAB [Suspect]
     Active Substance: PEMBROLIZUMAB
     Indication: Non-small cell lung cancer metastatic
     Route: 065
  4. PEMBROLIZUMAB [Suspect]
     Active Substance: PEMBROLIZUMAB
     Indication: Metastases to central nervous system
  5. IMMUNE GLOBULIN NOS [Suspect]
     Active Substance: IMMUNE GLOBULIN NOS
     Indication: Evidence based treatment
     Route: 042
  6. IMMUNE GLOBULIN NOS [Suspect]
     Active Substance: IMMUNE GLOBULIN NOS
     Indication: Herpes simplex encephalitis

REACTIONS (7)
  - Pneumonia aspiration [Fatal]
  - Herpes simplex encephalitis [Unknown]
  - Gait disturbance [Unknown]
  - Diplopia [Unknown]
  - Encephalopathy [Unknown]
  - Aphasia [Unknown]
  - Drug ineffective [Unknown]
